FAERS Safety Report 5782391-2 (Version None)
Quarter: 2008Q2

REPORT INFORMATION
  Report Type: 
  Country: None (occurrence: None)
  Receive Date: 20080623
  Receipt Date: 20071105
  Transmission Date: 20081010
  Serious: No
  Sender: FDA-Public Use
  Company Number: US-AMGEN-US245459

PATIENT
  Sex: Male
  Weight: 81.7 kg

DRUGS (7)
  1. ARANESP [Suspect]
     Indication: RENAL FAILURE CHRONIC
     Route: 058
     Dates: start: 20060320
  2. DIGITEK [Concomitant]
     Route: 065
  3. SYNTHROID [Concomitant]
     Route: 065
  4. IRON [Concomitant]
     Route: 065
  5. COUMADIN [Concomitant]
     Route: 065
  6. VITAMIN D [Concomitant]
     Route: 065
  7. LASIX [Concomitant]

REACTIONS (6)
  - ASTHENIA [None]
  - DIARRHOEA [None]
  - DYSPNOEA [None]
  - NAUSEA [None]
  - OEDEMA PERIPHERAL [None]
  - TREMOR [None]
